FAERS Safety Report 4425496-0 (Version None)
Quarter: 2004Q3

REPORT INFORMATION
  Report Type: 
  Country: None (occurrence: None)
  Receive Date: 20040810
  Receipt Date: 20040726
  Transmission Date: 20050211
  Serious: No
  Sender: FDA-Public Use
  Company Number: 28877

PATIENT
  Age: 46 Year
  Sex: Female
  Weight: 63.5036 kg

DRUGS (4)
  1. BSS [Suspect]
     Indication: SURGERY
     Dosage: 15 ML SINGLE SURGICAL USE OPHT
     Route: 047
     Dates: start: 20040706, end: 20040706
  2. LIPITOR [Concomitant]
  3. LEXAPRO [Concomitant]
  4. NEXIUM [Concomitant]

REACTIONS (2)
  - KERATITIS [None]
  - POST PROCEDURAL COMPLICATION [None]
